FAERS Safety Report 9246221 (Version 1)
Quarter: 2013Q2

REPORT INFORMATION
  Report Type: Spontaneous
  Country: BR (occurrence: BR)
  Receive Date: 20130422
  Receipt Date: 20130422
  Transmission Date: 20140414
  Serious: Yes (Hospitalization, Other)
  Sender: FDA-Public Use
  Company Number: BR-ASTRAZENECA-2013SE25719

PATIENT
  Age: 784 Month
  Sex: Male
  Weight: 93 kg

DRUGS (1)
  1. NEXIUM [Suspect]
     Indication: GASTRITIS
     Route: 048
     Dates: start: 201110

REACTIONS (4)
  - Precancerous mucosal lesion [Unknown]
  - Myocardial infarction [Recovered/Resolved]
  - Haematochezia [Unknown]
  - Weight decreased [Not Recovered/Not Resolved]
